FAERS Safety Report 16136627 (Version 1)
Quarter: 2019Q1

REPORT INFORMATION
  Report Type: Spontaneous
  Country: US (occurrence: US)
  Receive Date: 20190329
  Receipt Date: 20190329
  Transmission Date: 20190418
  Serious: No
  Sender: FDA-Public Use
  Company Number: US-TEIKOKU PHARMA USA-TPU2019-00225

PATIENT
  Sex: Male
  Weight: 83.99 kg

DRUGS (5)
  1. VALIUM [Concomitant]
     Active Substance: DIAZEPAM
     Indication: HYPERTENSION
     Dosage: INCREASED LEVEL FOR BLOOD PRESSURE TO DROP. INCREASE TO 4 10 MG FOUR TIMES A DAY MADE MY BLOOD PRESS
     Dates: start: 201902
  2. TYLENOL WITH CODEINE [Concomitant]
     Active Substance: ACETAMINOPHEN\CODEINE PHOSPHATE
     Indication: NECK PAIN
     Dates: start: 201709
  3. LIDOCAINE PATCH [Suspect]
     Active Substance: LIDOCAINE
     Indication: ABDOMINAL PAIN
     Dosage: APPLY 6 PATCHES 3 TIMES A DAY IN THE ABDOMEN, WAISTLINE AND GROIN AREA
     Dates: start: 201806
  4. LIDOCAINE. [Concomitant]
     Active Substance: LIDOCAINE
     Indication: NERVE COMPRESSION
     Dosage: LEFT LOWER ABDOMEN AREA
     Dates: start: 201706
  5. TYLENOL WITH CODEINE [Concomitant]
     Active Substance: ACETAMINOPHEN\CODEINE PHOSPHATE
     Indication: BACK PAIN

REACTIONS (1)
  - Incorrect dose administered [Unknown]
